FAERS Safety Report 7417689-5 (Version None)
Quarter: 2011Q2

REPORT INFORMATION
  Report Type: 
  Country: None (occurrence: None)
  Receive Date: 20110415
  Receipt Date: 20110411
  Transmission Date: 20111010
  Serious: Yes (Hospitalization)
  Sender: FDA-Public Use
  Company Number: US-PFIZER INC-2011079738

PATIENT
  Sex: Female
  Weight: 54.875 kg

DRUGS (2)
  1. SYNTHROID [Concomitant]
     Indication: THYROID DISORDER
     Dosage: 50 UG, 1X/DAY
     Route: 048
  2. PREMARIN [Suspect]
     Indication: HORMONE THERAPY
     Dosage: UNK
     Route: 048
     Dates: end: 20090101

REACTIONS (1)
  - PALPITATIONS [None]
